FAERS Safety Report 6292500-7 (Version None)
Quarter: 2009Q3

REPORT INFORMATION
  Report Type: 
  Country: None (occurrence: None)
  Receive Date: 20090731
  Receipt Date: 20090721
  Transmission Date: 20100115
  Serious: Yes (Hospitalization)
  Sender: FDA-Public Use
  Company Number: JP-PFIZER INC-2009246504

PATIENT
  Age: 75 Year

DRUGS (6)
  1. MIGLITOL [Suspect]
     Indication: DIABETES MELLITUS
     Dosage: UNK MG, UNK
     Route: 048
  2. WARFARIN [Concomitant]
     Route: 048
  3. PLETAL [Concomitant]
     Route: 048
  4. TAKEPRON [Concomitant]
     Route: 048
  5. NU LOTAN [Concomitant]
     Route: 048
  6. NORVASC [Concomitant]
     Route: 048

REACTIONS (1)
  - ILEUS [None]
